FAERS Safety Report 17756225 (Version 2)
Quarter: 2020Q2

REPORT INFORMATION
  Report Type: Spontaneous
  Country: US (occurrence: US)
  Receive Date: 20200507
  Receipt Date: 20200527
  Transmission Date: 20200714
  Serious: No
  Sender: FDA-Public Use
  Company Number: US-BIOGEN-2020BI00851464

PATIENT
  Sex: Female
  Weight: 74 kg

DRUGS (2)
  1. TYSABRI [Suspect]
     Active Substance: NATALIZUMAB
     Dosage: INFUSED OVER 1 HOUR
     Route: 042
     Dates: start: 20200224, end: 20200224
  2. TYSABRI [Suspect]
     Active Substance: NATALIZUMAB
     Indication: MULTIPLE SCLEROSIS
     Route: 065

REACTIONS (15)
  - Palpitations [Unknown]
  - Middle insomnia [Unknown]
  - Headache [Not Recovered/Not Resolved]
  - Chest discomfort [Unknown]
  - Hypoaesthesia [Unknown]
  - Atrophy [Unknown]
  - Visual acuity reduced [Unknown]
  - Balance disorder [Unknown]
  - Prescribed underdose [Unknown]
  - Vision blurred [Unknown]
  - Cognitive disorder [Unknown]
  - Asthenia [Unknown]
  - Amnesia [Unknown]
  - Pain in extremity [Unknown]
  - Paraesthesia [Unknown]
